FAERS Safety Report 6506561-0 (Version None)
Quarter: 2009Q4

REPORT INFORMATION
  Report Type: 
  Country: None (occurrence: None)
  Receive Date: 20091221
  Receipt Date: 20091208
  Transmission Date: 20100525
  Serious: No
  Sender: FDA-Public Use
  Company Number: US-JNJFOC-20091203319

PATIENT
  Sex: Female
  Weight: 71.22 kg

DRUGS (2)
  1. SANDOZ FENTANYL TRANSDERMAL SYSTEM [Suspect]
     Indication: NEUROPATHY PERIPHERAL
     Route: 062
  2. SANDOZ FENTANYL TRANSDERMAL SYSTEM [Suspect]
     Indication: BACK PAIN
     Route: 062

REACTIONS (1)
  - WRONG TECHNIQUE IN DRUG USAGE PROCESS [None]
